FAERS Safety Report 22366160 (Version 3)
Quarter: 2023Q2

REPORT INFORMATION
  Report Type: Spontaneous
  Country: US (occurrence: US)
  Receive Date: 20230525
  Receipt Date: 20230613
  Transmission Date: 20230722
  Serious: Yes (Hospitalization, Other)
  Sender: FDA-Public Use
  Company Number: US-ORGANON-O2305USA002212

PATIENT
  Age: 37 Year
  Sex: Female
  Weight: 59.41 kg

DRUGS (11)
  1. NEXPLANON [Suspect]
     Active Substance: ETONOGESTREL
     Indication: Contraception
     Dosage: 1 IMPLANT OF 68 MG, LEFT ARM
     Route: 059
     Dates: start: 20220809, end: 20230525
  2. HYDRODIURIL [Concomitant]
     Active Substance: HYDROCHLOROTHIAZIDE
     Dosage: 1 TABLET ( 25 MILLIGRAM TOTAL) BY MOUTH ONCE A DAY
     Route: 048
  3. MAXALT-MLT [Concomitant]
     Active Substance: RIZATRIPTAN BENZOATE
     Indication: Migraine
     Dosage: 1 TABLET (10 MILLIGRAM TOTAL) BY MOUTH ONCE, AS NEEDED, FOR UP TO 1 DOSE MAY REPEAT IN 2 HOURS
     Route: 048
  4. NORVASC [Concomitant]
     Active Substance: AMLODIPINE BESYLATE
     Dosage: UNK
     Route: 048
  5. NORVASC [Concomitant]
     Active Substance: AMLODIPINE BESYLATE
     Dosage: 1 TABLET (10 MILLIGRAM TOTAL) BY MOUTH ONCE A DAY
     Route: 048
     Dates: start: 2023
  6. CATAPRES [Concomitant]
     Active Substance: CLONIDINE HYDROCHLORIDE
     Dosage: 1 TABLET (0.1 MILLIGRAM TOTAL) BY MOUTH TWICE PER DAY AS NEEDED (GREATER THAN 180/100)
     Route: 048
  7. CATAPRES [Concomitant]
     Active Substance: CLONIDINE HYDROCHLORIDE
     Dosage: PATIENT TAKE DIFFERENTLY : 1 TABLET (0.1 MG IN TOTAL) BY MOUTH EVERY NIGHT
     Route: 048
  8. PROZAC [Concomitant]
     Active Substance: FLUOXETINE HYDROCHLORIDE
     Dosage: TAKE 2 CAPSULES (80 MG TOTAL) BY MOUTH ONCE A DAY
     Route: 048
  9. PROVERA [MEDROXYPROGESTERONE] [Concomitant]
     Dosage: UNK
  10. OZEMPIC [Concomitant]
     Active Substance: SEMAGLUTIDE
     Dosage: 2MG/DOSE (8MG/3 ML) (REPORTED AS INJECT 2 MG UNDER THE SKIN EVERY 7 DAYS)
     Route: 058
  11. DIOVAN [Concomitant]
     Active Substance: VALSARTAN
     Dosage: 1 TABLET (320 MILLIGRAM TOTAL) BY MOUTH ONCE A DAY FOR 30 DAYS
     Route: 048

REACTIONS (2)
  - Hypertension [Not Recovered/Not Resolved]
  - Vaginal haemorrhage [Unknown]

NARRATIVE: CASE EVENT DATE: 20220801
